FAERS Safety Report 11346611 (Version 1)
Quarter: 2015Q3

REPORT INFORMATION
  Report Type: Spontaneous
  Country: US (occurrence: US)
  Receive Date: 20150803
  Receipt Date: 20150803
  Transmission Date: 20151125
  Serious: No
  Sender: FDA-Public Use
  Company Number: US-ELI_LILLY_AND_COMPANY-US201009002521

PATIENT
  Age: 63 Year
  Sex: Female

DRUGS (2)
  1. STRATTERA [Suspect]
     Active Substance: ATOMOXETINE HYDROCHLORIDE
     Dosage: 60 MG, 2/D
  2. STRATTERA [Suspect]
     Active Substance: ATOMOXETINE HYDROCHLORIDE
     Indication: ATTENTION DEFICIT/HYPERACTIVITY DISORDER
     Dosage: 40 MG, 2/D

REACTIONS (10)
  - Mania [Unknown]
  - Insomnia [Unknown]
  - Irritability [Unknown]
  - Impulsive behaviour [Unknown]
  - Restlessness [Unknown]
  - Feeling abnormal [Unknown]
  - Drug ineffective [Unknown]
  - Anxiety [Unknown]
  - Nausea [Unknown]
  - Agitation [Unknown]
